FAERS Safety Report 20363729 (Version 1)
Quarter: 2022Q1

REPORT INFORMATION
  Report Type: Spontaneous
  Country: ER (occurrence: ER)
  Receive Date: 20220121
  Receipt Date: 20220121
  Transmission Date: 20220423
  Serious: Yes (Hospitalization, Other)
  Sender: FDA-Public Use
  Company Number: ER-LUPIN PHARMACEUTICALS INC.-2022-00596

PATIENT
  Age: 25 Year
  Sex: Male

DRUGS (1)
  1. DICLOFENAC SODIUM [Suspect]
     Active Substance: DICLOFENAC SODIUM
     Dosage: UNK, INJECTION
     Route: 030

REACTIONS (10)
  - Rhabdomyolysis [Recovering/Resolving]
  - Anaemia [Recovering/Resolving]
  - Necrosis [Recovering/Resolving]
  - Acute kidney injury [Recovering/Resolving]
  - Haemorrhage [Recovering/Resolving]
  - Confusional state [Recovering/Resolving]
  - Anxiety [Recovering/Resolving]
  - Depressed level of consciousness [Recovering/Resolving]
  - Dyspnoea [Recovering/Resolving]
  - Cardiac murmur [Recovering/Resolving]
